FAERS Safety Report 10745675 (Version 1)
Quarter: 2015Q1

REPORT INFORMATION
  Report Type: Spontaneous
  Country: US (occurrence: None)
  Receive Date: 20150127
  Receipt Date: 20150127
  Transmission Date: 20150721
  Serious: Yes (Disabling, Other)
  Sender: FDA-Public Use
  Company Number: None

PATIENT
  Age: 56 Year
  Sex: Female
  Weight: 81.65 kg

DRUGS (1)
  1. ESCITALOPRAM [Suspect]
     Active Substance: ESCITALOPRAM OXALATE
     Indication: DEPRESSION
     Route: 048
     Dates: start: 20150111, end: 20150123

REACTIONS (15)
  - Activities of daily living impaired [None]
  - Emotional distress [None]
  - Incoherent [None]
  - Somnolence [None]
  - Pain in extremity [None]
  - Disturbance in attention [None]
  - Myalgia [None]
  - Insomnia [None]
  - Arthralgia [None]
  - Product substitution issue [None]
  - Bone pain [None]
  - Economic problem [None]
  - Back pain [None]
  - Feelings of worthlessness [None]
  - Aphasia [None]

NARRATIVE: CASE EVENT DATE: 20150111
